FAERS Safety Report 22001885 (Version 3)
Quarter: 2023Q2

REPORT INFORMATION
  Report Type: Spontaneous
  Country: US (occurrence: US)
  Receive Date: 20230216
  Receipt Date: 20230404
  Transmission Date: 20230721
  Serious: Yes (Other)
  Sender: FDA-Public Use
  Company Number: US-PRINSTON PHARMACEUTICAL INC.-2023PRN00058

PATIENT
  Sex: Female
  Weight: 70.295 kg

DRUGS (6)
  1. DULOXETINE [Suspect]
     Active Substance: DULOXETINE
     Indication: Illness
     Dosage: 20 MG, 1X/DAY
     Route: 048
  2. DULOXETINE [Suspect]
     Active Substance: DULOXETINE
     Dosage: 40 MG, 1X/DAY
     Route: 048
     Dates: end: 2021
  3. LISINOPRIL [Suspect]
     Active Substance: LISINOPRIL
     Indication: Hypertension
     Dosage: 5 MG, 1X/DAY
     Route: 048
     Dates: end: 20230214
  4. DULOXETINE [Suspect]
     Active Substance: DULOXETINE
     Indication: Unevaluable event
     Dosage: 40 MG, 1X/DAY
     Route: 048
     Dates: start: 2021, end: 20230214
  5. SYNTHROID [Concomitant]
     Active Substance: LEVOTHYROXINE SODIUM
  6. TYLENOL PM [Concomitant]
     Active Substance: ACETAMINOPHEN\DIPHENHYDRAMINE

REACTIONS (5)
  - Self-injurious ideation [Recovered/Resolved]
  - Insomnia [Unknown]
  - Sleep deficit [Recovered/Resolved]
  - Emotional disorder [Not Recovered/Not Resolved]
  - Fatigue [Recovered/Resolved]

NARRATIVE: CASE EVENT DATE: 20190101
